FAERS Safety Report 6059048-6 (Version None)
Quarter: 2009Q1

REPORT INFORMATION
  Report Type: 
  Country: None (occurrence: None)
  Receive Date: 20090130
  Receipt Date: 20090119
  Transmission Date: 20090719
  Serious: Yes (Death)
  Sender: FDA-Public Use
  Company Number: B0554834A

PATIENT
  Age: 75 Year
  Sex: Male

DRUGS (5)
  1. ZOPHREN [Suspect]
     Dosage: 8MG PER DAY
     Route: 048
     Dates: start: 20070419, end: 20070425
  2. VIDAZA [Suspect]
     Dosage: 75MGM2 PER DAY
     Route: 058
     Dates: start: 20070419, end: 20070425
  3. CORDARONE [Concomitant]
     Dosage: 100MG PER DAY
     Route: 065
  4. TAHOR [Concomitant]
     Route: 065
  5. KARDEGIC [Concomitant]
     Dosage: 75MG PER DAY
     Route: 065

REACTIONS (1)
  - CARDIAC ARREST [None]
